FAERS Safety Report 5298216-8 (Version None)
Quarter: 2007Q1

REPORT INFORMATION
  Report Type: 
  Country: None (occurrence: None)
  Receive Date: 20070205
  Receipt Date: 20060621
  Transmission Date: 20070707
  Serious: Yes (Hospitalization)
  Sender: FDA-Public Use
  Company Number: US200606001195

PATIENT
  Sex: Female

DRUGS (5)
  1. EVISTA [Suspect]
     Indication: OSTEOPOROSIS
     Dosage: ORAL
     Route: 048
     Dates: start: 20060301, end: 20060501
  2. LEVOTHYROXINE SODIUM [Concomitant]
  3. GLIPIZIDE [Concomitant]
  4. ACTOS (PIOGLITAZONE UNKNOWN FORMULATION) [Concomitant]
  5. CALTRATE+ D (CALCIUM CARBONATE, COLECALCIFEROL) [Concomitant]

REACTIONS (23)
  - ARTHRALGIA [None]
  - ARTHRITIS [None]
  - CHEST PAIN [None]
  - CHILLS [None]
  - CONDITION AGGRAVATED [None]
  - FATIGUE [None]
  - HYPERHIDROSIS [None]
  - INFLUENZA LIKE ILLNESS [None]
  - LARYNGITIS [None]
  - MALAISE [None]
  - MUSCLE SPASMS [None]
  - MYALGIA [None]
  - NECK PAIN [None]
  - OEDEMA PERIPHERAL [None]
  - PNEUMONIA [None]
  - PYREXIA [None]
  - RASH [None]
  - SINUS CONGESTION [None]
  - THROAT IRRITATION [None]
  - TREMOR [None]
  - VAGINAL DISCHARGE [None]
  - VAGINAL INFLAMMATION [None]
  - VISION BLURRED [None]
